FAERS Safety Report 10362421 (Version 1)
Quarter: 2014Q1

REPORT INFORMATION
  Report Type: Report from Study
  Country: US (occurrence: None)
  Receive Date: 20140306
  Receipt Date: 20140306
  Transmission Date: 20141002
  Serious: Yes (Other)
  Sender: FDA-Public Use
  Company Number: 163-21880-13021180

PATIENT
  Sex: 0

DRUGS (3)
  1. REVLIMID (LENALIDOMIDE) (CAPSULES) [Suspect]
     Indication: PLASMA CELL MYELOMA
     Route: 048
  2. DEXAMETHASONE (DEXAMETHASONE) (UNKNOWN) [Suspect]
     Indication: PLASMA CELL MYELOMA
  3. ACY-1215 [Suspect]
     Indication: PLASMA CELL MYELOMA

REACTIONS (10)
  - Alanine aminotransferase increased [None]
  - Eosinophil count increased [None]
  - Aspartate aminotransferase increased [None]
  - Blood alkaline phosphatase increased [None]
  - Platelet count decreased [None]
  - Anaemia [None]
  - Faeces soft [None]
  - Muscle spasms [None]
  - Lymphopenia [None]
  - Nausea [None]
